FAERS Safety Report 5749666-4 (Version None)
Quarter: 2008Q2

REPORT INFORMATION
  Report Type: 
  Country: None (occurrence: None)
  Receive Date: 20080527
  Receipt Date: 20080514
  Transmission Date: 20081010
  Serious: Yes (Hospitalization, Other)
  Sender: FDA-Public Use
  Company Number: US-MERCK-0802USA01620

PATIENT
  Age: 54 Year
  Sex: Female

DRUGS (1)
  1. FOSAMAX [Suspect]
     Indication: OSTEOPOROSIS PROPHYLAXIS
     Route: 048
     Dates: start: 20020101

REACTIONS (6)
  - ACCIDENT AT WORK [None]
  - ADVERSE EVENT [None]
  - APPENDICEAL MUCOCOELE [None]
  - NASAL SEPTUM DEVIATION [None]
  - OSTEONECROSIS [None]
  - THERMAL BURN [None]
